FAERS Safety Report 7699446-8 (Version None)
Quarter: 2011Q3

REPORT INFORMATION
  Report Type: 
  Country: None (occurrence: None)
  Receive Date: 20110820
  Receipt Date: 20100923
  Transmission Date: 20111222
  Serious: No
  Sender: FDA-Public Use
  Company Number: US-ALLERGAN-1012335US

PATIENT
  Age: 65 Year
  Sex: Female

DRUGS (1)
  1. SANCTURA XR [Suspect]
     Indication: HYPERTONIC BLADDER
     Dosage: 60 MG, QPM
     Dates: start: 20100909, end: 20100922

REACTIONS (2)
  - DRUG INEFFECTIVE [None]
  - CYSTITIS [None]
